FAERS Safety Report 6889325-8 (Version None)
Quarter: 2010Q3

REPORT INFORMATION
  Report Type: 
  Country: None (occurrence: None)
  Receive Date: 20100730
  Receipt Date: 20080207
  Transmission Date: 20110219
  Serious: No
  Sender: FDA-Public Use
  Company Number: US-PFIZER INC-2007108185

PATIENT
  Sex: Female

DRUGS (2)
  1. LIPITOR [Suspect]
  2. ZYRTEC [Suspect]
     Indication: SINUS DISORDER

REACTIONS (4)
  - DRY EYE [None]
  - DRY MOUTH [None]
  - DRY THROAT [None]
  - SNEEZING [None]
